FAERS Safety Report 6069516-9 (Version None)
Quarter: 2009Q1

REPORT INFORMATION
  Report Type: 
  Country: None (occurrence: None)
  Receive Date: 20090206
  Receipt Date: 20090131
  Transmission Date: 20090719
  Serious: No
  Sender: FDA-Public Use
  Company Number: US-B.I. PHARMACEUTICALS,INC./RIDGEFIELD-2009-BP-01342BP

PATIENT
  Sex: Male

DRUGS (3)
  1. SPIRIVA [Suspect]
     Indication: ASTHMA
     Dosage: 18MCG
     Route: 055
     Dates: start: 20090130
  2. SPIRIVA [Suspect]
     Indication: PULMONARY CONGESTION
  3. HYTRIN [Concomitant]

REACTIONS (2)
  - RHINORRHOEA [None]
  - SNEEZING [None]
